FAERS Safety Report 25458017 (Version 1)
Quarter: 2025Q2

REPORT INFORMATION
  Report Type: Spontaneous
  Country: FR (occurrence: FR)
  Receive Date: 20250620
  Receipt Date: 20250620
  Transmission Date: 20250717
  Serious: Yes (Hospitalization, Other)
  Sender: AUROBINDO
  Company Number: FR-AFSSAPS-PP2025000556

PATIENT
  Age: 27 Year
  Sex: Male
  Weight: 60 kg

DRUGS (1)
  1. VALPROIC ACID [Suspect]
     Active Substance: VALPROIC ACID
     Indication: Epilepsy
     Route: 048
     Dates: start: 20241104

REACTIONS (1)
  - Cerebral atrophy [Not Recovered/Not Resolved]

NARRATIVE: CASE EVENT DATE: 20241204
